FAERS Safety Report 4973186-8 (Version None)
Quarter: 2006Q2

REPORT INFORMATION
  Report Type: 
  Country: None (occurrence: None)
  Receive Date: 20060407
  Receipt Date: 20060329
  Transmission Date: 20061013
  Serious: Yes (Hospitalization)
  Sender: FDA-Public Use
  Company Number: 2006035773

PATIENT
  Age: 62 Year
  Sex: Female
  Weight: 131.5431 kg

DRUGS (9)
  1. ROLAIDS [Suspect]
     Indication: GASTRIC ULCER
     Dosage: 10-12 TABLETS PER DAY PRN, ORAL
     Route: 048
     Dates: start: 19960101
  2. CALCIUM CARBONATE (CALCIUM CARBONATE) [Suspect]
     Indication: GASTRIC ULCER
     Dates: start: 19960101
  3. RANITIDINE HYDROCHLORIDE [Concomitant]
  4. VERAPAMIL [Concomitant]
  5. ESTROGEN NOS (ESTROGEN NOS) [Concomitant]
  6. SPIRONOLACTONE [Concomitant]
  7. KETOROLAC TROMETHAMINE [Concomitant]
  8. PANCREATIN TRIPLE STRENGTH CAP [Concomitant]
  9. GINGER (GINGER) [Concomitant]

REACTIONS (2)
  - KIDNEY MALFORMATION [None]
  - NEPHROLITHIASIS [None]
